FAERS Safety Report 9663757 (Version 1)
Quarter: 2013Q4

REPORT INFORMATION
  Report Type: Spontaneous
  Country: US (occurrence: None)
  Receive Date: 20131030
  Receipt Date: 20131030
  Transmission Date: 20140711
  Serious: Yes (Other)
  Sender: FDA-Public Use
  Company Number: None

PATIENT
  Age: 20 Year
  Sex: Male
  Weight: 81.65 kg

DRUGS (1)
  1. PROPECIA [Suspect]
     Indication: ALOPECIA
     Dosage: 1 DOSE ONCE DAILY TAKEN BY MOUTH
     Route: 048

REACTIONS (3)
  - Loss of libido [None]
  - Amnesia [None]
  - Male genital atrophy [None]
